FAERS Safety Report 10479741 (Version 2)
Quarter: 2014Q3

REPORT INFORMATION
  Report Type: Report from Study
  Country: US (occurrence: US)
  Receive Date: 20140927
  Receipt Date: 20140927
  Transmission Date: 20150326
  Serious: Yes (Other)
  Sender: FDA-Public Use
  Company Number: US-ALEXION PHARMACEUTICALS INC-A200700332

PATIENT
  Sex: Male

DRUGS (11)
  1. SOLIRIS [Suspect]
     Active Substance: ECULIZUMAB
     Indication: PAROXYSMAL NOCTURNAL HAEMOGLOBINURIA
  2. ACIDOPHILUS [Concomitant]
     Active Substance: LACTOBACILLUS ACIDOPHILUS
  3. TESTOSTERONE. [Concomitant]
     Active Substance: TESTOSTERONE
  4. BAYER EXTRA STRENGTH BACK AND BODY PAIN [Concomitant]
  5. COQ10                              /00517201/ [Concomitant]
  6. MULTIVITAMIN                       /00097801/ [Concomitant]
     Active Substance: VITAMINS
  7. PHOSPHORUS [Concomitant]
     Active Substance: PHOSPHORUS
  8. FOLIC ACID. [Concomitant]
     Active Substance: FOLIC ACID
  9. FISH OIL [Concomitant]
     Active Substance: FISH OIL
  10. B12                                /00056201/ [Concomitant]
  11. COLON CLEANSER NATURAL DETOX FORMULA [Concomitant]

REACTIONS (26)
  - Diarrhoea [Unknown]
  - Back pain [Unknown]
  - Quality of life decreased [Unknown]
  - Scleral discolouration [Unknown]
  - Sinusitis [Unknown]
  - Fatigue [Unknown]
  - Constipation [Unknown]
  - Haemoglobinuria [Unknown]
  - Jaundice [Unknown]
  - Weight increased [Unknown]
  - Throat tightness [Unknown]
  - Asthenia [Unknown]
  - Stress [Unknown]
  - Pain [Unknown]
  - Abdominal pain [Unknown]
  - Haemolysis [Unknown]
  - Flank pain [Unknown]
  - Exposure to mould [Unknown]
  - Dysphagia [Unknown]
  - Pyrexia [Unknown]
  - Central venous catheterisation [Unknown]
  - Initial insomnia [Unknown]
  - Dyspnoea [Unknown]
  - Depressed mood [Unknown]
  - Hypoaesthesia [Unknown]
  - Nasopharyngitis [Unknown]
